FAERS Safety Report 6614580-9 (Version None)
Quarter: 2010Q1

REPORT INFORMATION
  Report Type: 
  Country: None (occurrence: None)
  Receive Date: 20100304
  Receipt Date: 20100304
  Transmission Date: 20100710
  Serious: Yes (Hospitalization, Other)
  Sender: FDA-Public Use
  Company Number: None

PATIENT
  Sex: Male
  Weight: 136.0791 kg

DRUGS (8)
  1. GEODON [Suspect]
     Indication: DEPRESSION
     Dosage: 80 MG TWICE DAILY PO
     Route: 048
     Dates: start: 20070603, end: 20070618
  2. GEODON [Suspect]
     Indication: DRUG WITHDRAWAL SYNDROME
     Dosage: UNKNOWN UNKNOWN IM
     Route: 030
  3. VISTIRIL [Concomitant]
  4. AMBIEN [Concomitant]
  5. KLONAPIN [Concomitant]
  6. CELEXA [Concomitant]
  7. NICOTINE [Concomitant]
  8. ATIVAN [Concomitant]

REACTIONS (24)
  - AGGRESSION [None]
  - AGORAPHOBIA [None]
  - ANGER [None]
  - ANHEDONIA [None]
  - ANXIETY [None]
  - BACK PAIN [None]
  - CONDITION AGGRAVATED [None]
  - DEPRESSION [None]
  - DISTURBANCE IN ATTENTION [None]
  - DYSKINESIA [None]
  - FEAR [None]
  - HEADACHE [None]
  - IMPAIRED WORK ABILITY [None]
  - INSOMNIA [None]
  - MEMORY IMPAIRMENT [None]
  - MUSCLE TWITCHING [None]
  - MUSCULOSKELETAL PAIN [None]
  - NIGHTMARE [None]
  - PARAESTHESIA [None]
  - SOCIAL AVOIDANT BEHAVIOUR [None]
  - SUICIDAL IDEATION [None]
  - THINKING ABNORMAL [None]
  - TREMOR [None]
  - VISUAL IMPAIRMENT [None]
